FAERS Safety Report 15930834 (Version 1)
Quarter: 2019Q1

REPORT INFORMATION
  Report Type: Spontaneous
  Country: US (occurrence: US)
  Receive Date: 20190207
  Receipt Date: 20190207
  Transmission Date: 20190417
  Serious: Yes (Disabling, Other)
  Sender: FDA-Public Use
  Company Number: None

PATIENT
  Age: 45 Year
  Sex: Female
  Weight: 85.5 kg

DRUGS (1)
  1. LEVAQUIN [Suspect]
     Active Substance: LEVOFLOXACIN
     Indication: SINUSITIS
     Dosage: ?          QUANTITY:10 CAPSULE(S);?
     Route: 048
     Dates: start: 20070319, end: 20091106

REACTIONS (6)
  - Neuropathy peripheral [None]
  - Memory impairment [None]
  - Cardiac valve disease [None]
  - Heart injury [None]
  - Tooth fracture [None]
  - Tendon rupture [None]

NARRATIVE: CASE EVENT DATE: 20070319
